FAERS Safety Report 7622336-3 (Version None)
Quarter: 2011Q3

REPORT INFORMATION
  Report Type: 
  Country: None (occurrence: None)
  Receive Date: 20110720
  Receipt Date: 20110119
  Transmission Date: 20111222
  Serious: Yes (Death, Hospitalization, Other)
  Sender: FDA-Public Use
  Company Number: US-BAYER-201010268NA

PATIENT
  Age: 76 Year
  Sex: Female
  Weight: 72.562 kg

DRUGS (49)
  1. ISOSORBIDE DINITRATE [Concomitant]
     Route: 048
  2. RENAGEL [Concomitant]
     Dosage: 20 MG, UNK
     Route: 048
     Dates: start: 20030104
  3. LASIX [Concomitant]
     Dosage: 100 MG, UNK
     Route: 042
     Dates: start: 20030106
  4. KEFLEX [Concomitant]
  5. ENALAPRIL MALEATE [Concomitant]
     Route: 048
  6. HEPARIN [Concomitant]
     Dosage: 5000 U, CPB
     Dates: start: 20030124, end: 20030124
  7. LIDOCAINE [Concomitant]
     Dosage: 100 MG, CPB
     Dates: start: 20030124, end: 20030124
  8. ZOSYN [Concomitant]
     Dosage: 2.25 G, UNK
     Route: 042
     Dates: start: 20030109
  9. VICODIN [Concomitant]
     Dosage: UNK
     Route: 048
     Dates: start: 20030109
  10. LEVAQUIN [Concomitant]
     Route: 048
  11. CATAPRES [Concomitant]
     Route: 048
  12. PHOSLO [Concomitant]
     Dosage: UNK
     Route: 048
  13. VANCOMYCIN [Concomitant]
     Dosage: 1 G, UNK
     Route: 042
     Dates: start: 20030109
  14. ALBUMIN (HUMAN) [Concomitant]
     Dosage: 250 ML, CPB
     Dates: start: 20030124, end: 20030124
  15. RED BLOOD CELLS [Concomitant]
     Dosage: UNK
     Dates: start: 20030124
  16. ZOCOR [Concomitant]
     Route: 048
  17. CARDIZEM [Concomitant]
     Route: 048
  18. NOVOLOG [Concomitant]
     Dosage: SLIDING SCALE
     Route: 058
     Dates: start: 20030103
  19. HEPARIN [Concomitant]
     Dosage: 850 UNITS/HR
     Route: 042
     Dates: start: 20030105
  20. HEPARIN [Concomitant]
     Dosage: 23000 U, CPB
     Dates: start: 20030124, end: 20030124
  21. FENTANYL-100 [Concomitant]
     Dosage: UNK
     Route: 042
     Dates: start: 20030109
  22. FENTANYL-100 [Concomitant]
     Dosage: UNK
     Route: 042
     Dates: start: 20030124, end: 20030124
  23. LABETALOL HCL [Concomitant]
     Dosage: UNK
     Route: 042
     Dates: start: 20030109
  24. ACETYLSALICYLIC ACID SRT [Concomitant]
     Dosage: 81 MG, UNK
     Route: 048
     Dates: start: 20030113
  25. FERRLECIT [Concomitant]
     Dosage: UNK
     Route: 042
     Dates: start: 20030113
  26. DIGOXIN [Concomitant]
  27. GLIPIZIDE [Concomitant]
     Route: 048
  28. VERSED [Concomitant]
     Dosage: UNK
     Route: 042
     Dates: start: 20030109
  29. LIDOCAINE [Concomitant]
     Dosage: 100 MG, UNK
     Route: 042
     Dates: start: 20030109
  30. LISINOPRIL [Concomitant]
     Dosage: 20 MG, UNK
     Route: 048
     Dates: start: 20030110
  31. GLUCOTROL [Concomitant]
     Dosage: 7.5 MG, UNK
     Route: 048
     Dates: start: 20030113
  32. PROTAMINE SULFATE [Concomitant]
     Dosage: UNK
     Route: 042
     Dates: start: 20030117
  33. TRASYLOL [Suspect]
     Indication: CORONARY ARTERY BYPASS
     Dosage: 200 ML, CARDIOPULMONARY BYPASS PRIME
     Route: 042
     Dates: start: 20030124, end: 20030124
  34. CARDIZEM [Concomitant]
     Dosage: 10MG/HR
     Route: 042
     Dates: start: 20030103
  35. AMIODARONE HCL [Concomitant]
     Dosage: 200 MG, UNK
     Route: 048
     Dates: start: 20030103
  36. ARANESP [Concomitant]
     Dosage: 0.1 MG, UNK
     Route: 058
     Dates: start: 20030103
  37. PLAVIX [Concomitant]
     Dosage: 75 MG, UNK
     Route: 048
     Dates: start: 20030109
  38. VANCOMYCIN [Concomitant]
     Dosage: 1 G, CPB
     Dates: start: 20030124, end: 20030124
  39. PROPOFOL [Concomitant]
     Dosage: UNK
     Route: 042
     Dates: start: 20030109
  40. VERSED [Concomitant]
     Dosage: UNK
     Route: 042
     Dates: start: 20030124, end: 20030124
  41. ZEMURON [Concomitant]
     Dosage: UNK
     Route: 042
     Dates: start: 20030117
  42. ETOMIDATE [Concomitant]
     Dosage: UNK
     Route: 042
     Dates: start: 20030124, end: 20030124
  43. METOPROLOL TARTRATE [Concomitant]
     Dosage: 25 MG, UNK
     Route: 048
  44. NITROGLYCERIN [Concomitant]
     Dosage: TITRATED DRIP
     Route: 042
     Dates: start: 20030103
  45. LIPITOR [Concomitant]
     Dosage: 10 MG, UNK
     Route: 048
     Dates: start: 20030106
  46. IMDUR [Concomitant]
     Dosage: 20 MG, UNK
     Route: 048
     Dates: start: 20030110
  47. VECURONIUM BROMIDE [Concomitant]
     Dosage: UNK
     Route: 042
     Dates: start: 20030124, end: 20030124
  48. PROCARDIA [Concomitant]
     Route: 048
  49. CLONIDINE [Concomitant]
     Dosage: 0.3 MG, UNK
     Route: 048
     Dates: start: 20030104

REACTIONS (12)
  - STRESS [None]
  - RENAL IMPAIRMENT [None]
  - INJURY [None]
  - DEATH [None]
  - FEAR [None]
  - RENAL INJURY [None]
  - ANXIETY [None]
  - RENAL FAILURE [None]
  - EMOTIONAL DISTRESS [None]
  - PAIN [None]
  - ANHEDONIA [None]
  - UNEVALUABLE EVENT [None]
